FAERS Safety Report 23052473 (Version 4)
Quarter: 2023Q4

REPORT INFORMATION
  Report Type: Report from Study
  Country: JP (occurrence: JP)
  Receive Date: 20231011
  Receipt Date: 20231220
  Transmission Date: 20240109
  Serious: Yes (Other)
  Sender: FDA-Public Use
  Company Number: JP-JNJFOC-20230870821

PATIENT
  Age: 79 Year
  Sex: Male

DRUGS (6)
  1. IMBRUVICA [Suspect]
     Active Substance: IBRUTINIB
     Indication: Mantle cell lymphoma recurrent
     Dosage: IBRUTINIB:140MG
     Route: 048
     Dates: start: 202307, end: 202311
  2. IMBRUVICA [Suspect]
     Active Substance: IBRUTINIB
     Indication: Mantle cell lymphoma recurrent
     Dosage: IBRUTINIB:140MG
     Route: 048
     Dates: start: 2023, end: 20231211
  3. IMBRUVICA [Suspect]
     Active Substance: IBRUTINIB
     Indication: Mantle cell lymphoma recurrent
     Dosage: IBRUTINIB:140MG
     Route: 048
     Dates: start: 202311, end: 2023
  4. IMBRUVICA [Suspect]
     Active Substance: IBRUTINIB
     Indication: Mantle cell lymphoma recurrent
     Dosage: IBRUTINIB:140MG
     Route: 048
     Dates: start: 2023, end: 2023
  5. DARBEPOETIN ALFA [Concomitant]
     Active Substance: DARBEPOETIN ALFA
     Indication: Red blood cell count decreased
     Dosage: DOSE UNKNOWN?DARBEPOETIN ALFA(GENETICAL RECOMBINATION)
     Route: 042
     Dates: start: 202307
  6. MAGNESIUM OXIDE [Concomitant]
     Active Substance: MAGNESIUM OXIDE
     Indication: Product used for unknown indication
     Route: 048

REACTIONS (19)
  - Red blood cell count decreased [Unknown]
  - Taste disorder [Unknown]
  - Dizziness [Unknown]
  - Anxiety [Unknown]
  - Platelet count decreased [Unknown]
  - Alcohol intolerance [Unknown]
  - White blood cell count increased [Unknown]
  - Stomatitis [Unknown]
  - Hypoaesthesia oral [Unknown]
  - Eczema [Unknown]
  - Decreased appetite [Unknown]
  - Muscle spasms [Recovered/Resolved]
  - Constipation [Unknown]
  - Malaise [Not Recovered/Not Resolved]
  - Dry skin [Unknown]
  - Nasopharyngitis [Unknown]
  - Limb discomfort [Unknown]
  - Gait disturbance [Unknown]
  - Drug ineffective [Unknown]

NARRATIVE: CASE EVENT DATE: 20230101
